FAERS Safety Report 21050206 (Version 1)
Quarter: 2022Q3

REPORT INFORMATION
  Report Type: Spontaneous
  Country: GB (occurrence: GB)
  Receive Date: 20220706
  Receipt Date: 20220706
  Transmission Date: 20221027
  Serious: Yes (Other)
  Sender: FDA-Public Use
  Company Number: GB-MHRA-MED-202206280746528370-HLMYT

PATIENT
  Age: 60 Year
  Sex: Male
  Weight: 73 kg

DRUGS (3)
  1. TERBINAFINE [Suspect]
     Active Substance: TERBINAFINE
     Indication: Fungal infection
     Dates: start: 20220112, end: 20220601
  2. TOLNAFTATE [Suspect]
     Active Substance: TOLNAFTATE
     Indication: Fungal infection
     Dates: start: 20220112, end: 20220601
  3. BECLOMETHASONE\FORMOTEROL [Concomitant]
     Active Substance: BECLOMETHASONE\FORMOTEROL
     Indication: Product used for unknown indication
     Route: 055

REACTIONS (1)
  - Erectile dysfunction [Recovering/Resolving]

NARRATIVE: CASE EVENT DATE: 20220601
